FAERS Safety Report 5705947-1 (Version None)
Quarter: 2008Q2

REPORT INFORMATION
  Report Type: 
  Country: None (occurrence: None)
  Receive Date: 20080411
  Receipt Date: 20080326
  Transmission Date: 20081010
  Serious: Yes (Hospitalization, Other)
  Sender: FDA-Public Use
  Company Number: VNL_01031_2008

PATIENT
  Age: 65 Year
  Sex: Male

DRUGS (6)
  1. APOFIN - APOMORPHINE [Suspect]
     Indication: PARKINSON'S DISEASE
     Dosage: (2 MG QID SUBCUTANEOUS)
     Route: 058
  2. APOFIN - APOMORPHINE [Suspect]
     Indication: PARKINSON'S DISEASE
     Dosage: 1 MG QID SUBCUTANEOUS
     Route: 058
  3. CARBIDOPA AND LEVODOPA [Concomitant]
  4. PRAMIPEXOLE DIHYDROCHLORIDE [Concomitant]
  5. PROPRANOLOL [Concomitant]
  6. DOMPERIDONE [Concomitant]

REACTIONS (9)
  - ACID BASE BALANCE ABNORMAL [None]
  - ATRIAL FIBRILLATION [None]
  - BLOOD CATECHOLAMINES ABNORMAL [None]
  - ELECTROLYTE IMBALANCE [None]
  - HYPERCAPNIA [None]
  - HYPOXIA [None]
  - LEUKOCYTOSIS [None]
  - POST PROCEDURAL COMPLICATION [None]
  - THORACIC OPERATION [None]
